FAERS Safety Report 5832836-4 (Version None)
Quarter: 2008Q3

REPORT INFORMATION
  Report Type: 
  Country: None (occurrence: None)
  Receive Date: 20080804
  Receipt Date: 20080731
  Transmission Date: 20090109
  Serious: Yes (Death)
  Sender: FDA-Public Use
  Company Number: DE-WYE-G01944408

PATIENT

DRUGS (1)
  1. TYGACIL [Suspect]
     Indication: ABDOMINAL INFECTION
     Dosage: UNKNOWN
     Route: 042

REACTIONS (1)
  - HEPATIC FAILURE [None]
